FAERS Safety Report 10030079 (Version 1)
Quarter: 2014Q1

REPORT INFORMATION
  Report Type: Spontaneous
  Country: US (occurrence: US)
  Receive Date: 20140323
  Receipt Date: 20140323
  Transmission Date: 20141002
  Serious: No
  Sender: FDA-Public Use
  Company Number: US-ALLERGAN-1311774US

PATIENT
  Age: 60 Year
  Sex: Female

DRUGS (5)
  1. LATISSE 0.03% [Suspect]
     Indication: GROWTH OF EYELASHES
     Dosage: 2 GTT, UNK
     Route: 061
  2. LATISSE 0.03% [Suspect]
     Indication: HAIR GROWTH ABNORMAL
     Dosage: UNK
     Route: 061
  3. LATISSE 0.03% [Suspect]
     Dosage: UNK UNK, QHS
     Route: 061
  4. CLEAR EYES                         /00582501/ [Concomitant]
     Indication: EYE LUBRICATION THERAPY
     Dosage: UNK
     Route: 047
  5. HEART MEDICATION [Concomitant]
     Indication: PRODUCT USED FOR UNKNOWN INDICATION
     Dosage: UNK

REACTIONS (10)
  - Application site discolouration [Not Recovered/Not Resolved]
  - Eyelid thickening [Recovering/Resolving]
  - Inappropriate schedule of drug administration [Unknown]
  - Wrong technique in drug usage process [Unknown]
  - Off label use [Unknown]
  - Madarosis [Not Recovered/Not Resolved]
  - Madarosis [Not Recovered/Not Resolved]
  - Madarosis [Not Recovered/Not Resolved]
  - Eye irritation [Unknown]
  - Vision blurred [Unknown]
